FAERS Safety Report 16341156 (Version 2)
Quarter: 2021Q1

REPORT INFORMATION
  Report Type: Spontaneous
  Country: US (occurrence: US)
  Receive Date: 20190522
  Receipt Date: 20210128
  Transmission Date: 20210419
  Serious: Yes (Other)
  Sender: FDA-Public Use
  Company Number: US-GILEAD-2019-0407991

PATIENT
  Sex: Female
  Weight: 77.1 kg

DRUGS (25)
  1. AMOXICILLIN. [Concomitant]
     Active Substance: AMOXICILLIN
  2. TRUVADA [Suspect]
     Active Substance: EMTRICITABINE\TENOFOVIR DISOPROXIL FUMARATE
     Dosage: UNK
     Route: 048
     Dates: start: 20121017, end: 20161026
  3. LISINOPRIL. [Concomitant]
     Active Substance: LISINOPRIL
  4. MELOXICAM. [Concomitant]
     Active Substance: MELOXICAM
  5. ASPIRIN (E.C.) [Concomitant]
     Active Substance: ASPIRIN
  6. FUROSEMIDE. [Concomitant]
     Active Substance: FUROSEMIDE
  7. HUMULIN 70/30 [Concomitant]
     Active Substance: INSULIN HUMAN
  8. ROSUVASTATIN. [Concomitant]
     Active Substance: ROSUVASTATIN
  9. LORATADINE. [Concomitant]
     Active Substance: LORATADINE
  10. TRUVADA [Suspect]
     Active Substance: EMTRICITABINE\TENOFOVIR DISOPROXIL FUMARATE
     Dosage: UNK
     Route: 048
     Dates: start: 20121017, end: 20160921
  11. CLOPIDOGREL [Concomitant]
     Active Substance: CLOPIDOGREL BISULFATE
  12. CELEBREX [Concomitant]
     Active Substance: CELECOXIB
  13. LANTUS [Concomitant]
     Active Substance: INSULIN GLARGINE
  14. COMPLERA [Suspect]
     Active Substance: EMTRICITABINE\RILPIVIRINE HYDROCHLORIDE\TENOFOVIR DISOPROXIL FUMARATE
     Indication: HIV INFECTION
     Dosage: UNK
     Route: 048
     Dates: start: 20130204, end: 20130304
  15. EDURANT [Concomitant]
     Active Substance: RILPIVIRINE HYDROCHLORIDE
  16. PRAVASTATIN. [Concomitant]
     Active Substance: PRAVASTATIN
  17. NASONEX [Concomitant]
     Active Substance: MOMETASONE FUROATE
  18. METOPROLOL. [Concomitant]
     Active Substance: METOPROLOL
  19. PROPYLTHIOURACIL. [Concomitant]
     Active Substance: PROPYLTHIOURACIL
  20. TRUVADA [Suspect]
     Active Substance: EMTRICITABINE\TENOFOVIR DISOPROXIL FUMARATE
     Indication: HIV INFECTION
     Dosage: UNK
     Route: 048
     Dates: start: 2011, end: 2011
  21. ODEFSEY [Concomitant]
     Active Substance: EMTRICITABINE\RILPIVIRINE HYDROCHLORIDE\TENOFOVIR ALAFENAMIDE FUMARATE
  22. FAMOTIDINE. [Concomitant]
     Active Substance: FAMOTIDINE
  23. HYDROCHLOROTHIAZIDE. [Concomitant]
     Active Substance: HYDROCHLOROTHIAZIDE
  24. JANUMET [Concomitant]
     Active Substance: METFORMIN HYDROCHLORIDE\SITAGLIPTIN PHOSPHATE
  25. TIZANIDINE. [Concomitant]
     Active Substance: TIZANIDINE

REACTIONS (18)
  - Spinal pain [Unknown]
  - Nightmare [Unknown]
  - Bone density decreased [Not Recovered/Not Resolved]
  - Economic problem [Not Recovered/Not Resolved]
  - Back pain [Recovering/Resolving]
  - Skeletal injury [Unknown]
  - Depression [Not Recovered/Not Resolved]
  - Osteoporosis [Not Recovered/Not Resolved]
  - Emotional distress [Not Recovered/Not Resolved]
  - Spinal pain [Not Recovered/Not Resolved]
  - Anxiety [Not Recovered/Not Resolved]
  - Gait disturbance [Not Recovered/Not Resolved]
  - Anxiety [Not Recovered/Not Resolved]
  - Arthralgia [Not Recovered/Not Resolved]
  - Pain [Not Recovered/Not Resolved]
  - Anhedonia [Not Recovered/Not Resolved]
  - Pain in extremity [Not Recovered/Not Resolved]
  - Renal impairment [Not Recovered/Not Resolved]

NARRATIVE: CASE EVENT DATE: 2012
